FAERS Safety Report 4402737-7 (Version None)
Quarter: 2004Q3

REPORT INFORMATION
  Report Type: 
  Country: None (occurrence: None)
  Receive Date: 20040721
  Receipt Date: 20031126
  Transmission Date: 20050211
  Serious: No
  Sender: FDA-Public Use
  Company Number: US-BRISTOL-MYERS SQUIBB COMPANY-12444600

PATIENT
  Age: 62 Year
  Sex: Female
  Weight: 63 kg

DRUGS (4)
  1. ESTRACE [Suspect]
     Indication: HOT FLUSH
     Route: 048
     Dates: start: 20030823
  2. KLONOPIN [Concomitant]
     Indication: FIBROMYALGIA
     Dates: start: 20000101
  3. VICODIN [Concomitant]
     Indication: FIBROMYALGIA
     Dates: start: 20020201
  4. LEVOTHYROID [Concomitant]
     Indication: HYPOTHYROIDISM
     Dates: start: 19770101

REACTIONS (1)
  - DRUG INEFFECTIVE [None]
